FAERS Safety Report 10608298 (Version 3)
Quarter: 2019Q3

REPORT INFORMATION
  Report Type: Report from Study
  Country: US (occurrence: US)
  Receive Date: 20141125
  Receipt Date: 20190710
  Transmission Date: 20191004
  Serious: Yes (Life-Threatening, Other)
  Sender: FDA-Public Use
  Company Number: US-GILEAD-2014-0114167

PATIENT
  Age: 62 Year
  Sex: Male

DRUGS (5)
  1. SOFOSBUVIR [Suspect]
     Active Substance: SOFOSBUVIR
     Indication: CHRONIC HEPATITIS C
     Dosage: 400 MG, QD
     Route: 065
     Dates: start: 20140811
  2. MELATONIN [Concomitant]
     Active Substance: MELATONIN
     Indication: INSOMNIA
  3. LISINOPRIL. [Concomitant]
     Active Substance: LISINOPRIL
     Indication: HYPERTENSION
  4. PEGASYS [Suspect]
     Active Substance: PEGINTERFERON ALFA-2A
     Indication: PRODUCT USED FOR UNKNOWN INDICATION
     Dosage: 1 DOSAGE FORM, Q1WK
     Route: 065
  5. COPEGUS [Suspect]
     Active Substance: RIBAVIRIN
     Indication: PRODUCT USED FOR UNKNOWN INDICATION
     Dosage: 1200 MG, QD
     Route: 065

REACTIONS (23)
  - Contusion [Unknown]
  - Dizziness [Unknown]
  - Red blood cell count decreased [Unknown]
  - Crying [Unknown]
  - Night sweats [Unknown]
  - Haematemesis [Unknown]
  - Platelet count decreased [Unknown]
  - Disturbance in attention [Unknown]
  - Insomnia [Unknown]
  - Gait disturbance [Unknown]
  - Urticaria [Unknown]
  - Depression [Unknown]
  - Suicidal ideation [Unknown]
  - Syncope [Unknown]
  - Coordination abnormal [Unknown]
  - Thinking abnormal [Recovered/Resolved]
  - Diarrhoea [Unknown]
  - Presyncope [Unknown]
  - Confusional state [Unknown]
  - Feeling abnormal [Recovered/Resolved]
  - Asthenia [Unknown]
  - Fatigue [Unknown]
  - Headache [Unknown]

NARRATIVE: CASE EVENT DATE: 20140811
